FAERS Safety Report 14387607 (Version 2)
Quarter: 2018Q4

REPORT INFORMATION
  Report Type: Spontaneous
  Country: US (occurrence: US)
  Receive Date: 20180115
  Receipt Date: 20181127
  Transmission Date: 20190204
  Serious: Yes (Other)
  Sender: FDA-Public Use
  Company Number: US-SA-2017SA195138

PATIENT
  Age: 51 Year
  Sex: Female
  Weight: 57 kg

DRUGS (7)
  1. TAXOTERE [Suspect]
     Active Substance: DOCETAXEL
     Dosage: UNK UNK,Q3W
     Route: 051
     Dates: start: 20061130, end: 20061130
  2. NEOSAR [Concomitant]
     Active Substance: CYCLOPHOSPHAMIDE
  3. LEVOTHYROXINE. [Concomitant]
     Active Substance: LEVOTHYROXINE
  4. TAXOTERE [Suspect]
     Active Substance: DOCETAXEL
     Indication: BREAST CANCER
     Dosage: UNK UNK,Q3W
     Route: 042
     Dates: start: 20060928, end: 20060928
  5. AMBIEN CR [Concomitant]
     Active Substance: ZOLPIDEM TARTRATE
  6. ADRIAMYCIN [Concomitant]
     Active Substance: DOXORUBICIN HYDROCHLORIDE
  7. ENALAPRIL [Concomitant]
     Active Substance: ENALAPRIL

REACTIONS (6)
  - Alopecia [Recovering/Resolving]
  - Anxiety [Unknown]
  - Pain [Unknown]
  - Psychological trauma [Unknown]
  - Emotional distress [Unknown]
  - Impaired quality of life [Unknown]

NARRATIVE: CASE EVENT DATE: 200706
